FAERS Safety Report 19073658 (Version 2)
Quarter: 2021Q2

REPORT INFORMATION
  Report Type: Other
  Country: US (occurrence: US)
  Receive Date: 20210330
  Receipt Date: 20210408
  Transmission Date: 20210717
  Serious: Yes (Death, Other)
  Sender: FDA-Public Use
  Company Number: US-ROCHE-2798601

PATIENT
  Age: 61 Year
  Sex: Male

DRUGS (9)
  1. VORICONAZOLE. [Concomitant]
     Active Substance: VORICONAZOLE
  2. CEFEPIME [Concomitant]
     Active Substance: CEFEPIME HYDROCHLORIDE
  3. CASPOFUNGIN [Concomitant]
     Active Substance: CASPOFUNGIN
     Dosage: DOSE  8 UG/ML
  4. AMPHOTERICIN B. [Concomitant]
     Active Substance: AMPHOTERICIN B
  5. PREDNISONE. [Suspect]
     Active Substance: PREDNISONE
     Indication: LIVER TRANSPLANT
     Route: 065
  6. MICAFUNGIN. [Concomitant]
     Active Substance: MICAFUNGIN SODIUM
     Route: 042
  7. MYCOPHENOLATE MOFETIL. [Suspect]
     Active Substance: MYCOPHENOLATE MOFETIL
     Indication: LIVER TRANSPLANT
     Route: 065
  8. TRIMETHOPRIM SULFAMETHOXAZOLE [Concomitant]
     Active Substance: SULFAMETHOXAZOLE\TRIMETHOPRIM
  9. TACROLIMUS. [Suspect]
     Active Substance: TACROLIMUS
     Indication: LIVER TRANSPLANT
     Route: 065

REACTIONS (8)
  - Cytomegalovirus viraemia [Unknown]
  - Septic shock [Unknown]
  - Escherichia bacteraemia [Unknown]
  - Multiple organ dysfunction syndrome [Fatal]
  - Infection [Unknown]
  - Dermatitis bullous [Unknown]
  - Device related infection [Unknown]
  - Protothecosis [Unknown]
